FAERS Safety Report 5136891-9 (Version None)
Quarter: 2006Q4

REPORT INFORMATION
  Report Type: 
  Country: None (occurrence: None)
  Receive Date: 20061023
  Receipt Date: 20061011
  Transmission Date: 20070319
  Serious: Yes (Other)
  Sender: FDA-Public Use
  Company Number: 2006125411

PATIENT
  Age: 76 Year
  Sex: Female

DRUGS (3)
  1. CARDURA [Suspect]
     Indication: HYPERTENSION
     Dosage: 4 MG (4 MG, FREQUENCY:  DAILY INTERVAL:  EVERY DAY)
  2. ATARAX [Concomitant]
  3. DRUG, (DRUG,) [Concomitant]

REACTIONS (1)
  - INFECTION [None]
